FAERS Safety Report 9783124 (Version 1)
Quarter: 2013Q4

REPORT INFORMATION
  Report Type: Spontaneous
  Country: CH (occurrence: CH)
  Receive Date: 20131226
  Receipt Date: 20131226
  Transmission Date: 20140711
  Serious: Yes (Hospitalization)
  Sender: FDA-Public Use
  Company Number: CH-ASTRAZENECA-2013SE92769

PATIENT
  Age: 85 Year
  Sex: Female

DRUGS (7)
  1. BELOC ZOK [Suspect]
     Indication: ESSENTIAL HYPERTENSION
     Route: 048
     Dates: start: 201104
  2. DIGOXINE [Suspect]
     Indication: ARRHYTHMIA
     Route: 048
     Dates: start: 1996
  3. TOREM [Suspect]
     Indication: ESSENTIAL HYPERTENSION
     Route: 048
     Dates: start: 2010, end: 20111013
  4. SINTROM [Concomitant]
     Indication: ESSENTIAL HYPERTENSION
     Dosage: DAILY, DOSE SELON INR
     Route: 048
     Dates: start: 1996
  5. DAFALGAN [Concomitant]
     Indication: PAIN
     Route: 048
     Dates: start: 20110930
  6. TRUSOPT [Concomitant]
     Indication: GLAUCOMA
     Route: 047
  7. XALATAN [Concomitant]
     Indication: GLAUCOMA
     Route: 047

REACTIONS (1)
  - Fall [Recovering/Resolving]
